FAERS Safety Report 14681110 (Version 1)
Quarter: 2018Q1

REPORT INFORMATION
  Report Type: Report from Study
  Country: US (occurrence: US)
  Receive Date: 20180326
  Receipt Date: 20180326
  Transmission Date: 20180509
  Serious: No
  Sender: FDA-Public Use
  Company Number: US-INCYTE CORPORATION-2018IN002420

PATIENT

DRUGS (1)
  1. JAKAFI [Suspect]
     Active Substance: RUXOLITINIB
     Indication: POLYCYTHAEMIA VERA
     Dosage: 20 MG, BID
     Route: 048

REACTIONS (7)
  - Haematocrit abnormal [Unknown]
  - Haemoglobin abnormal [Unknown]
  - Red blood cell abnormality [Unknown]
  - Platelet count abnormal [Unknown]
  - Blood lactate dehydrogenase increased [Unknown]
  - Blood erythropoietin abnormal [Unknown]
  - White blood cell count abnormal [Unknown]
